FAERS Safety Report 15900602 (Version 1)
Quarter: 2019Q1

REPORT INFORMATION
  Report Type: Spontaneous
  Country: US (occurrence: US)
  Receive Date: 20190109
  Receipt Date: 20190109
  Transmission Date: 20190417
  Serious: No
  Sender: FDA-Public Use
  Company Number: None

PATIENT
  Age: 54 Year
  Sex: Female

DRUGS (3)
  1. SUTENT [Suspect]
     Active Substance: SUNITINIB MALATE
     Indication: ENDOCRINE NEOPLASM MALIGNANT
     Route: 048
     Dates: start: 20170929
  2. ONDANSETRON [Concomitant]
     Active Substance: ONDANSETRON
  3. SOMATULINE DEPOT NADOLOL [Concomitant]

REACTIONS (5)
  - Fatigue [None]
  - Facial pain [None]
  - Cough [None]
  - Sinusitis [None]
  - Sneezing [None]

NARRATIVE: CASE EVENT DATE: 20190109
